FAERS Safety Report 21775453 (Version 5)
Quarter: 2023Q4

REPORT INFORMATION
  Report Type: Other
  Country: US (occurrence: None)
  Receive Date: 20221226
  Receipt Date: 20231017
  Transmission Date: 20240109
  Serious: Yes (Hospitalization, Other)
  Sender: FDA-Public Use
  Company Number: US-ROCHE-3248066

PATIENT
  Age: 84 Year
  Sex: Male
  Weight: 91.708 kg

DRUGS (17)
  1. ESBRIET [Suspect]
     Active Substance: PIRFENIDONE
     Indication: Idiopathic pulmonary fibrosis
     Dosage: TAKE 1 TABLETS BY MOUTH 3 TIMES A DAY
     Route: 048
     Dates: start: 20221211
  2. ESBRIET [Suspect]
     Active Substance: PIRFENIDONE
     Dosage: 1 TAB TID
     Route: 048
     Dates: start: 20220712
  3. ATORVASTATIN [Concomitant]
     Active Substance: ATORVASTATIN
     Indication: Blood cholesterol
     Route: 048
  4. FUROSEMIDE [Concomitant]
     Active Substance: FUROSEMIDE
     Dosage: DIURETIC FOR SWELLING
     Route: 048
  5. HYDRALAZINE [Concomitant]
     Active Substance: HYDRALAZINE HYDROCHLORIDE
     Indication: Blood pressure measurement
     Route: 048
  6. MINERALS\VITAMINS [Concomitant]
     Active Substance: MINERALS\VITAMINS
     Route: 048
  7. PANTOPRAZOLE [Concomitant]
     Active Substance: PANTOPRAZOLE
     Indication: Gastrooesophageal reflux disease
  8. UROXATRAL [Concomitant]
     Active Substance: ALFUZOSIN HYDROCHLORIDE
     Dosage: HELP EMPTY BLADDER
  9. WARFARIN [Concomitant]
     Active Substance: WARFARIN
  10. TYLENOL [Concomitant]
     Active Substance: ACETAMINOPHEN
     Indication: Pain
     Dosage: AS NEEDED NOT TO EXCEED 3000 MG DAILY
  11. BENZONATATE [Concomitant]
     Active Substance: BENZONATATE
     Indication: Cough
     Route: 048
  12. VOLTAREN [Concomitant]
     Active Substance: DICLOFENAC SODIUM
     Indication: Arthralgia
     Route: 061
  13. FLONASE [Concomitant]
     Active Substance: FLUTICASONE PROPIONATE
  14. OFEV [Concomitant]
     Active Substance: NINTEDANIB
  15. OMEPRAZOLE [Concomitant]
     Active Substance: OMEPRAZOLE
  16. DELTASONE [Concomitant]
     Active Substance: PREDNISONE
  17. COUMARIN [Concomitant]
     Active Substance: COUMARIN

REACTIONS (15)
  - Heart rate decreased [Unknown]
  - Oxygen saturation decreased [Unknown]
  - Decreased appetite [Not Recovered/Not Resolved]
  - Abdominal discomfort [Not Recovered/Not Resolved]
  - Cough [Unknown]
  - Urine output decreased [Unknown]
  - Dizziness [Unknown]
  - Fall [Unknown]
  - Swelling [Recovering/Resolving]
  - Arthralgia [Recovering/Resolving]
  - Asthenia [Not Recovered/Not Resolved]
  - Rib fracture [Recovered/Resolved]
  - Gastrointestinal disorder [Unknown]
  - Pulmonary hypertension [Unknown]
  - Respiratory failure [Unknown]

NARRATIVE: CASE EVENT DATE: 20221201
